FAERS Safety Report 9985378 (Version 1)
Quarter: 2014Q1

REPORT INFORMATION
  Report Type: Report from Study
  Country: US (occurrence: US)
  Receive Date: 20140307
  Receipt Date: 20140307
  Transmission Date: 20141002
  Serious: No
  Sender: FDA-Public Use
  Company Number: US-ABBVIE-14P-163-1185937-00

PATIENT
  Age: 35 Year
  Sex: Female

DRUGS (13)
  1. HUMIRA [Suspect]
     Indication: CROHN^S DISEASE
     Dates: start: 20130608
  2. DICYCLOMINE [Concomitant]
     Indication: GASTROINTESTINAL PAIN
     Route: 048
  3. DICYCLOMINE [Concomitant]
     Indication: CROHN^S DISEASE
  4. VITAMIN D [Concomitant]
     Indication: VITAMIN D DEFICIENCY
     Route: 048
  5. VITAMIN B 12 [Concomitant]
     Indication: VITAMIN B12 DEFICIENCY
     Route: 048
  6. PRENATAL VITAMINS [Concomitant]
     Indication: PRODUCT USED FOR UNKNOWN INDICATION
  7. VENLAFAXINE [Concomitant]
     Indication: NIGHT SWEATS
     Route: 048
  8. VENLAFAXINE [Concomitant]
     Indication: HOT FLUSH
  9. OMEPRAZOLE [Concomitant]
     Indication: DYSPEPSIA
     Route: 048
  10. DILAUDID [Concomitant]
     Indication: PAIN
     Route: 048
  11. PROBIOTIC [Concomitant]
     Indication: GASTROINTESTINAL DISORDER
     Route: 048
  12. PROMETHAZINE [Concomitant]
     Indication: NAUSEA
     Route: 048
  13. AMBIEN [Concomitant]
     Indication: INSOMNIA
     Route: 048

REACTIONS (3)
  - Nasal congestion [Not Recovered/Not Resolved]
  - Nasopharyngitis [Not Recovered/Not Resolved]
  - Pyrexia [Not Recovered/Not Resolved]
